FAERS Safety Report 7429159-9 (Version None)
Quarter: 2011Q2

REPORT INFORMATION
  Report Type: 
  Country: None (occurrence: None)
  Receive Date: 20110421
  Receipt Date: 20110419
  Transmission Date: 20111010
  Serious: Yes (Other)
  Sender: FDA-Public Use
  Company Number: GB-ROCHE-772358

PATIENT
  Age: 80 Year
  Sex: Male

DRUGS (1)
  1. CYMEVENE [Suspect]
     Route: 065
     Dates: start: 20110415

REACTIONS (1)
  - HAEMATURIA [None]
